FAERS Safety Report 7673130-9 (Version None)
Quarter: 2011Q3

REPORT INFORMATION
  Report Type: 
  Country: None (occurrence: None)
  Receive Date: 20110810
  Receipt Date: 20110801
  Transmission Date: 20111222
  Serious: No
  Sender: FDA-Public Use
  Company Number: US-BIOGENIDEC-2011BI028816

PATIENT
  Age: 29 Year
  Sex: Female

DRUGS (1)
  1. AVONEX [Suspect]
     Indication: MULTIPLE SCLEROSIS
     Route: 030
     Dates: start: 20100702

REACTIONS (5)
  - DECREASED IMMUNE RESPONSIVENESS [None]
  - ABDOMINAL DISCOMFORT [None]
  - VOMITING [None]
  - FEELING HOT [None]
  - INFLUENZA LIKE ILLNESS [None]
